FAERS Safety Report 6779837-X (Version None)
Quarter: 2010Q2

REPORT INFORMATION
  Report Type: 
  Country: None (occurrence: None)
  Receive Date: 20100618
  Receipt Date: 20100608
  Transmission Date: 20101027
  Serious: Yes (Other)
  Sender: FDA-Public Use
  Company Number: AR-JNJFOC-20100603494

PATIENT
  Age: 45 Year
  Sex: Male

DRUGS (2)
  1. REMICADE [Suspect]
     Indication: PSORIATIC ARTHROPATHY
     Dosage: DOSE: 4 VIALS
     Route: 042
  2. REMICADE [Suspect]
     Dosage: DOSE: 5 VIALS
     Route: 042

REACTIONS (6)
  - ANTINUCLEAR ANTIBODY POSITIVE [None]
  - ARTHRITIS [None]
  - BLOOD IMMUNOGLOBULIN E INCREASED [None]
  - CONJUNCTIVAL OEDEMA [None]
  - INFUSION RELATED REACTION [None]
  - PRURITUS GENERALISED [None]
